FAERS Safety Report 8236032-5 (Version None)
Quarter: 2012Q1

REPORT INFORMATION
  Report Type: 
  Country: None (occurrence: None)
  Receive Date: 20120326
  Receipt Date: 20120319
  Transmission Date: 20120608
  Serious: Yes (Other)
  Sender: FDA-Public Use
  Company Number: US-BAYER-2012-027189

PATIENT

DRUGS (2)
  1. SODIUM BICARBONATE [Suspect]
     Indication: PRODUCT USED FOR UNKNOWN INDICATION
  2. BENADRYL [Concomitant]

REACTIONS (2)
  - FEELING ABNORMAL [None]
  - MOBILITY DECREASED [None]
